FAERS Safety Report 7819648-7 (Version None)
Quarter: 2011Q4

REPORT INFORMATION
  Report Type: 
  Country: None (occurrence: None)
  Receive Date: 20111018
  Receipt Date: 20111004
  Transmission Date: 20120403
  Serious: Yes (Other)
  Sender: FDA-Public Use
  Company Number: PL-MYLANLABS-2011S1021090

PATIENT
  Age: 75 Year
  Sex: Female

DRUGS (4)
  1. CYCLOSPORINE [Suspect]
     Dosage: 2-3 MG/KG
     Route: 065
  2. AZATHIOPRINE [Concomitant]
     Indication: DERMATITIS ATOPIC
     Route: 065
  3. CYCLOSPORINE [Suspect]
     Indication: DERMATITIS ATOPIC
     Dosage: 1.5-2.5 MG/KG/DAY
     Route: 065
  4. MYCOPHENOLATE MOFETIL [Suspect]
     Indication: DERMATITIS ATOPIC
     Route: 065

REACTIONS (1)
  - MYCOSIS FUNGOIDES [None]
